FAERS Safety Report 6356679-0 (Version None)
Quarter: 2009Q3

REPORT INFORMATION
  Report Type: 
  Country: None (occurrence: None)
  Receive Date: 20090910
  Receipt Date: 20090910
  Transmission Date: 20100115
  Serious: Yes (Other)
  Sender: FDA-Public Use
  Company Number: None

PATIENT
  Age: 64 Year
  Sex: Male
  Weight: 72.5755 kg

DRUGS (2)
  1. PRAVASTATIN [Suspect]
     Indication: BLOOD CHOLESTEROL INCREASED
     Dosage: 20 MG HS DAILY PO
     Route: 048
     Dates: start: 20080601, end: 20090701
  2. PRAVACHOL [Suspect]
     Indication: BLOOD CHOLESTEROL INCREASED
     Dosage: 20 MG HS DAILY PO
     Route: 048
     Dates: start: 20040401, end: 20080601

REACTIONS (8)
  - AMNESIA [None]
  - ANXIETY [None]
  - DEPRESSION [None]
  - DYSARTHRIA [None]
  - ILL-DEFINED DISORDER [None]
  - MENTAL STATUS CHANGES [None]
  - PRODUCT SUBSTITUTION ISSUE [None]
  - TEARFULNESS [None]
